FAERS Safety Report 26183512 (Version 1)
Quarter: 2025Q4

REPORT INFORMATION
  Report Type: Spontaneous
  Country: US (occurrence: US)
  Receive Date: 20251221
  Receipt Date: 20251221
  Transmission Date: 20260119
  Serious: No
  Sender: BOEHRINGER INGELHEIM
  Company Number: US-Komodo Health-a23aa00000Cjn45AAB

PATIENT
  Sex: Female

DRUGS (2)
  1. HERNEXEOS [Suspect]
     Active Substance: ZONGERTINIB
     Indication: Non-small cell lung cancer
  2. HERNEXEOS [Suspect]
     Active Substance: ZONGERTINIB

REACTIONS (1)
  - Liver function test increased [Not Recovered/Not Resolved]
